FAERS Safety Report 9576799 (Version 1)
Quarter: 2013Q4

REPORT INFORMATION
  Report Type: Spontaneous
  Country: US (occurrence: US)
  Receive Date: 20131001
  Receipt Date: 20131001
  Transmission Date: 20140711
  Serious: No
  Sender: FDA-Public Use
  Company Number: US-AMGEN-USASP2013004796

PATIENT
  Age: 50 Year
  Sex: Female
  Weight: 99.77 kg

DRUGS (9)
  1. ENBREL [Suspect]
     Indication: RHEUMATOID ARTHRITIS
     Dosage: 50 MG, QWK
     Route: 058
  2. CENTRUM SILVER                     /02363801/ [Concomitant]
     Dosage: UNK
     Route: 048
  3. PLAQUENIL                          /00072602/ [Concomitant]
     Dosage: 200 MG, UNK
     Route: 048
  4. PREDNISONE [Concomitant]
     Dosage: 10 MG, UNK
     Route: 048
  5. MOBIC [Concomitant]
     Dosage: 15 MG, UNK
     Route: 048
  6. COSAMIN DS                         /06404301/ [Concomitant]
     Dosage: 500-400
     Route: 048
  7. CALCIUM +D                         /00944201/ [Concomitant]
     Dosage: 1000 UNK, UNK
     Route: 048
  8. FOLIC ACID [Concomitant]
     Dosage: 5 MG, UNK
     Route: 048
  9. METHOTREXATE [Concomitant]
     Dosage: 1 G, UNK
     Route: 058

REACTIONS (1)
  - Drug ineffective [Unknown]
